FAERS Safety Report 15680438 (Version 1)
Quarter: 2018Q4

REPORT INFORMATION
  Report Type: Spontaneous
  Country: US (occurrence: US)
  Receive Date: 20181203
  Receipt Date: 20181203
  Transmission Date: 20190205
  Serious: Yes (Life-Threatening, Hospitalization)
  Sender: FDA-Public Use
  Company Number: US-TARO-2018TAR00836

PATIENT
  Sex: Male

DRUGS (2)
  1. TRAZODONE [Suspect]
     Active Substance: TRAZODONE HYDROCHLORIDE
  2. AMIODARONE HCL TABLET 400 MG [Suspect]
     Active Substance: AMIODARONE HYDROCHLORIDE

REACTIONS (3)
  - Sleep disorder [Not Recovered/Not Resolved]
  - Decreased appetite [Recovered/Resolved]
  - Hypertension [Unknown]

NARRATIVE: CASE EVENT DATE: 2018
